FAERS Safety Report 6941416 (Version 11)
Quarter: 2013Q3

REPORT INFORMATION
  Report Type: Spontaneous
  Country: BR (occurrence: BR)
  Receive Date: 20090316
  Receipt Date: 20130917
  Transmission Date: 20140515
  Serious: Yes (Hospitalization, Other)
  Sender: FDA-Public Use
  Company Number: BR-ROCHE-615779

PATIENT
  Age: 61 Year
  Sex: Female
  Weight: 39.6 kg

DRUGS (20)
  1. RIVOTRIL [Suspect]
     Indication: DEPRESSION
     Dosage: 1 TABLET BY MORNING EVERY DAY, BY  HALF TABLET NIGHT AFTER MEALS
     Route: 048
     Dates: start: 1986, end: 200905
  2. RIVOTRIL [Interacting]
     Indication: ANXIETY
     Dosage: RESTARTED AFTER HOSPITALISATION
     Route: 048
  3. RIVOTRIL [Interacting]
     Indication: INSOMNIA
     Dosage: QUARTER TABLET IN THE MORNING / A QUARTER AT NIGHT
     Route: 048
  4. RIVOTRIL [Interacting]
     Route: 048
  5. DIAZEPAM [Suspect]
     Indication: ANXIETY
     Route: 065
  6. ALENDRONIC ACID [Suspect]
     Indication: OSTEOPOROSIS
     Dosage: DRUG :ALENDRONATE
     Route: 065
  7. DICETEL [Suspect]
     Indication: CONSTIPATION
     Dosage: START DATE : 2009 AND STOP DATE: 2009
     Route: 048
  8. CLOZAPINE [Suspect]
     Indication: PRODUCT USED FOR UNKNOWN INDICATION
     Route: 065
  9. CLOMIPRAMINE HCL [Interacting]
     Indication: PRODUCT USED FOR UNKNOWN INDICATION
     Route: 065
     Dates: start: 2012
  10. CLONAZEPAM [Suspect]
     Indication: DEPRESSION
     Route: 065
     Dates: start: 20091228, end: 20100101
  11. MIOSAN [Interacting]
     Indication: MUSCLE RELAXANT THERAPY
     Route: 065
  12. GINKGO BILOBA [Concomitant]
     Indication: CARDIOVASCULAR DISORDER
     Dosage: ONE CAPSULE/DAY DURING 2 YEARS
     Route: 048
  13. LABIRIN [Concomitant]
     Indication: DIZZINESS
     Route: 048
  14. HALDOL [Concomitant]
     Indication: DEPRESSION
     Route: 065
     Dates: start: 2003, end: 2003
  15. SERTRALINE [Concomitant]
     Indication: DEPRESSION
     Route: 048
  16. FLUOXETIN [Concomitant]
     Indication: DEPRESSION
     Route: 048
  17. FLORATIL [Concomitant]
  18. OLCADIL [Concomitant]
  19. OMEPRAZOLE [Concomitant]
     Route: 048
  20. ALGINAC [Concomitant]
     Indication: BONE PAIN

REACTIONS (53)
  - Withdrawal syndrome [Recovered/Resolved]
  - Intestinal polyp [Recovered/Resolved]
  - Breast mass [Unknown]
  - Bipolar disorder [Recovered/Resolved]
  - Constipation [Recovered/Resolved]
  - Depression [Not Recovered/Not Resolved]
  - Intervertebral disc protrusion [Not Recovered/Not Resolved]
  - Suicidal ideation [Recovered/Resolved]
  - Liver disorder [Unknown]
  - Drug dependence [Unknown]
  - Amnesia [Not Recovered/Not Resolved]
  - Feeling of despair [Recovered/Resolved]
  - Dyspnoea [Not Recovered/Not Resolved]
  - Restless legs syndrome [Not Recovered/Not Resolved]
  - Palpitations [Not Recovered/Not Resolved]
  - Aggression [Not Recovered/Not Resolved]
  - Tinnitus [Not Recovered/Not Resolved]
  - Vision blurred [Not Recovered/Not Resolved]
  - Nervousness [Not Recovered/Not Resolved]
  - Retching [Not Recovered/Not Resolved]
  - Abdominal pain upper [Not Recovered/Not Resolved]
  - Headache [Not Recovered/Not Resolved]
  - Insomnia [Recovered/Resolved]
  - Fatigue [Not Recovered/Not Resolved]
  - Panic attack [Not Recovered/Not Resolved]
  - Gastrointestinal pain [Not Recovered/Not Resolved]
  - Vomiting [Recovered/Resolved]
  - Diarrhoea [Recovered/Resolved]
  - Haemangioma [Unknown]
  - Scoliosis [Unknown]
  - Memory impairment [Recovered/Resolved]
  - Muscular weakness [Not Recovered/Not Resolved]
  - Gastritis [Not Recovered/Not Resolved]
  - Osteoporosis [Not Recovered/Not Resolved]
  - Crying [Recovered/Resolved]
  - Osteoarthritis [Not Recovered/Not Resolved]
  - Insomnia [Recovered/Resolved]
  - Nightmare [Recovered/Resolved]
  - Anger [Unknown]
  - Salivary hypersecretion [Unknown]
  - Nausea [Unknown]
  - Hallucination [Recovered/Resolved]
  - Drug interaction [Unknown]
  - Anxiety [Unknown]
  - Irritability [Unknown]
  - Platelet count decreased [Unknown]
  - Pain [Unknown]
  - Emotional disorder [Recovered/Resolved]
  - Fibromyalgia [Not Recovered/Not Resolved]
  - Psychiatric symptom [Not Recovered/Not Resolved]
  - Dizziness [Not Recovered/Not Resolved]
  - Drug ineffective [Unknown]
  - Muscular weakness [Not Recovered/Not Resolved]
